FAERS Safety Report 4375904-9 (Version None)
Quarter: 2004Q2

REPORT INFORMATION
  Report Type: 
  Country: None (occurrence: None)
  Receive Date: 20040607
  Receipt Date: 20040525
  Transmission Date: 20050107
  Serious: Yes (Hospitalization)
  Sender: FDA-Public Use
  Company Number: HQWYE108825MAY04

PATIENT
  Age: 77 Year
  Sex: Male

DRUGS (4)
  1. CORDARONE [Suspect]
     Dosage: 200 MG 1X PER 1 DAY, ORAL
     Route: 048
  2. PRAVASTATIN SODIUM [Suspect]
     Indication: HYPERCHOLESTEROLAEMIA
     Dosage: 10 MG 1X PER 1 DAY, ORAL
     Route: 048
  3. PREVISCAN (FLUINDIONE, ) [Suspect]
     Indication: MYOCARDIAL ISCHAEMIA
     Dosage: 15 MG 1X PER 1 DAY, ORAL
     Route: 048
     Dates: end: 20040301
  4. CORVASAL (MOLSIDOMINE) [Concomitant]

REACTIONS (6)
  - CARCINOEMBRYONIC ANTIGEN INCREASED [None]
  - COLON CANCER [None]
  - DRUG INTERACTION [None]
  - LYMPHADENOPATHY [None]
  - PROTHROMBIN TIME PROLONGED [None]
  - RECTAL HAEMORRHAGE [None]
